FAERS Safety Report 8154475-5 (Version None)
Quarter: 2012Q1

REPORT INFORMATION
  Report Type: 
  Country: None (occurrence: None)
  Receive Date: 20120221
  Receipt Date: 20120214
  Transmission Date: 20120608
  Serious: Yes (Other)
  Sender: FDA-Public Use
  Company Number: CA-B.I. PHARMACEUTICALS,INC./RIDGEFIELD-2012-CN-00368CN

PATIENT
  Age: 52 Year
  Sex: Male

DRUGS (9)
  1. DEPO-MEDROL [Concomitant]
     Route: 008
  2. DILTIAZEM HCL [Concomitant]
     Route: 048
  3. PANTOPRAZOLE [Concomitant]
     Route: 048
  4. ATORVASTATIN CALCIUM [Concomitant]
     Route: 048
  5. GRAVOL TAB [Concomitant]
     Route: 065
  6. PRADAXA [Suspect]
     Dosage: 300 MG
     Route: 048
  7. HYDROMORPHONE HCL [Concomitant]
     Route: 048
  8. QUININE SULFATE [Concomitant]
     Route: 048
  9. TRAZODONE HYDROCHLORIDE [Concomitant]
     Route: 048

REACTIONS (5)
  - HYPERTENSION [None]
  - FATIGUE [None]
  - CONDITION AGGRAVATED [None]
  - HEADACHE [None]
  - DYSPNOEA [None]
